FAERS Safety Report 14517213 (Version 1)
Quarter: 2018Q1

REPORT INFORMATION
  Report Type: Report from Study
  Country: BR (occurrence: BR)
  Receive Date: 20180212
  Receipt Date: 20180212
  Transmission Date: 20180509
  Serious: Yes (Hospitalization, Other)
  Sender: FDA-Public Use
  Company Number: BR-ROCHE-1930376

PATIENT
  Age: 60 Year
  Sex: Female
  Weight: 62 kg

DRUGS (2)
  1. AVASTIN [Suspect]
     Active Substance: BEVACIZUMAB
     Indication: COLORECTAL CANCER
     Route: 042
  2. AMOXICILLIN. [Concomitant]
     Active Substance: AMOXICILLIN
     Indication: SINUSITIS
     Route: 065

REACTIONS (11)
  - Mental disorder [Recovered/Resolved]
  - Bladder disorder [Recovered/Resolved]
  - Malaise [Recovered/Resolved]
  - Haemorrhage [Recovered/Resolved]
  - Memory impairment [Recovered/Resolved]
  - Gastrointestinal disorder [Recovered/Resolved]
  - Visual impairment [Recovered/Resolved]
  - Vomiting [Recovered/Resolved]
  - Appendix disorder [Unknown]
  - Anorectal disorder [Recovered/Resolved]
  - Fatigue [Recovered/Resolved]

NARRATIVE: CASE EVENT DATE: 201710
